FAERS Safety Report 13367457 (Version 5)
Quarter: 2018Q1

REPORT INFORMATION
  Report Type: Report from Study
  Country: JP (occurrence: JP)
  Receive Date: 20170324
  Receipt Date: 20180118
  Transmission Date: 20180508
  Serious: Yes (Hospitalization)
  Sender: FDA-Public Use
  Company Number: JP-ROCHE-1911211

PATIENT
  Age: 75 Year
  Sex: Male
  Weight: 53.4 kg

DRUGS (9)
  1. UNIPHYLLIN [Concomitant]
     Active Substance: THEOPHYLLINE ANHYDROUS
     Indication: ASTHMA
     Dosage: 200 MG, QD
     Route: 048
  2. PICOSULFATE [Concomitant]
     Active Substance: SODIUM PICOSULFATE
     Indication: CONSTIPATION
     Dosage: 2.5 MG, UNK
     Route: 048
  3. NEXIUM [Concomitant]
     Active Substance: ESOMEPRAZOLE MAGNESIUM
     Indication: GASTROOESOPHAGEAL REFLUX DISEASE
     Dosage: 20 MG, UNK
     Route: 048
  4. CLARITH [Concomitant]
     Active Substance: CLARITHROMYCIN
     Indication: EMPHYSEMA
     Dosage: 200 MG, UNK
     Route: 048
  5. SYMBICORT [Concomitant]
     Active Substance: BUDESONIDE\FORMOTEROL FUMARATE DIHYDRATE
     Indication: ASTHMA
     Dosage: 2 IU, QID
     Route: 055
  6. MONTELUKAST [Concomitant]
     Active Substance: MONTELUKAST SODIUM
     Indication: ASTHMA
     Dosage: 10 MG, QD
     Route: 048
  7. PREDONINE [Concomitant]
     Active Substance: PREDNISOLONE
     Indication: ASTHMA
     Dosage: 8 MG, QD
     Route: 048
  8. TULOBUTEROL [Concomitant]
     Active Substance: TULOBUTEROL
     Indication: ASTHMA
     Dosage: 1 DF, QD
     Route: 062
  9. OMALIZUMAB. [Suspect]
     Active Substance: OMALIZUMAB
     Indication: ASTHMA
     Dosage: 450 MG, EVERY 4 WEEKS
     Route: 058
     Dates: start: 20170314, end: 20170314

REACTIONS (3)
  - Dyspnoea [Recovered/Resolved]
  - Pyrexia [Recovered/Resolved]
  - Chills [Recovered/Resolved]

NARRATIVE: CASE EVENT DATE: 20170314
